FAERS Safety Report 8050349-9 (Version None)
Quarter: 2012Q1

REPORT INFORMATION
  Report Type: 
  Country: None (occurrence: None)
  Receive Date: 20120117
  Receipt Date: 20120112
  Transmission Date: 20120608
  Serious: Yes (Other)
  Sender: FDA-Public Use
  Company Number: US-TEVA-313778USA

PATIENT
  Sex: Female
  Weight: 87.894 kg

DRUGS (3)
  1. LEVOTHYROXINE SODIUM [Concomitant]
     Indication: HYPOTHYROIDISM
     Dosage: 50 MICROGRAM;
  2. PRENATAL VITAMINS                  /01549301/ [Concomitant]
     Dosage: 50 MICROGRAM;
  3. COPAXONE [Suspect]
     Indication: MULTIPLE SCLEROSIS
     Route: 058
     Dates: start: 20080101

REACTIONS (1)
  - ABORTION SPONTANEOUS [None]
